FAERS Safety Report 21404362 (Version 3)
Quarter: 2022Q4

REPORT INFORMATION
  Report Type: Spontaneous
  Country: US (occurrence: US)
  Receive Date: 20221003
  Receipt Date: 20221108
  Transmission Date: 20230113
  Serious: No
  Sender: FDA-Public Use
  Company Number: US-SA-2022SA404325

PATIENT
  Age: 68 Year
  Sex: Female

DRUGS (5)
  1. DUPIXENT [Suspect]
     Active Substance: DUPILUMAB
     Indication: Neurodermatitis
     Dosage: 300 MG, QOW
     Route: 058
     Dates: start: 202209
  2. BIOTIN [Concomitant]
     Active Substance: BIOTIN
  3. POTASSIUM [Concomitant]
     Active Substance: POTASSIUM
  4. CYPROHEPTADINE [Concomitant]
     Active Substance: CYPROHEPTADINE
  5. VITAMIN E [Concomitant]
     Active Substance: .ALPHA.-TOCOPHEROL

REACTIONS (5)
  - Diarrhoea [Unknown]
  - Skin discolouration [Unknown]
  - Hair disorder [Unknown]
  - Lacrimation increased [Unknown]
  - Skin disorder [Unknown]

NARRATIVE: CASE EVENT DATE: 20220901
